FAERS Safety Report 24692901 (Version 1)
Quarter: 2024Q4

REPORT INFORMATION
  Report Type: Spontaneous
  Country: CN (occurrence: CN)
  Receive Date: 20241203
  Receipt Date: 20241203
  Transmission Date: 20250115
  Serious: Yes (Other)
  Sender: NOVARTIS
  Company Number: CN-002147023-NVSC2024CN228930

PATIENT
  Age: 70 Year
  Sex: Male
  Weight: 61 kg

DRUGS (2)
  1. DEFERASIROX [Suspect]
     Active Substance: DEFERASIROX
     Indication: Blood iron increased
     Dosage: 875.000 MG, QD
     Route: 048
     Dates: start: 20240522
  2. DEFERASIROX [Suspect]
     Active Substance: DEFERASIROX
     Dosage: 1250 MG, QD
     Route: 048
     Dates: start: 20241111, end: 20241124

REACTIONS (1)
  - Acute kidney injury [Recovering/Resolving]

NARRATIVE: CASE EVENT DATE: 20241123
